FAERS Safety Report 5626259-0 (Version None)
Quarter: 2008Q1

REPORT INFORMATION
  Report Type: 
  Country: None (occurrence: None)
  Receive Date: 20080213
  Receipt Date: 20080213
  Transmission Date: 20080703
  Serious: Yes (Other)
  Sender: FDA-Public Use
  Company Number: None

PATIENT
  Age: 75 Year
  Sex: Male
  Weight: 77.5651 kg

DRUGS (1)
  1. SIMVASTATIN [Suspect]
     Dosage: 20MG HS PO
     Route: 048
     Dates: start: 20071101, end: 20080101

REACTIONS (5)
  - HEADACHE [None]
  - MYALGIA [None]
  - MYOSITIS [None]
  - PAIN [None]
  - SENSORY DISTURBANCE [None]
